FAERS Safety Report 10222209 (Version 1)
Quarter: 2014Q2

REPORT INFORMATION
  Report Type: Spontaneous
  Country: US (occurrence: US)
  Receive Date: 20140606
  Receipt Date: 20140606
  Transmission Date: 20141212
  Serious: No
  Sender: FDA-Public Use
  Company Number: US-ASTRAZENECA-2014SE36471

PATIENT
  Age: 24 Year
  Sex: Female

DRUGS (2)
  1. SEROQUEL IR [Suspect]
     Route: 048
  2. SEROQUEL IR [Suspect]
     Dosage: TOOK OVERDOSE OF THREE OR FOUR TABLETS OF 50 MG
     Route: 048
     Dates: start: 20140507

REACTIONS (1)
  - Intentional overdose [Unknown]
